FAERS Safety Report 9145613 (Version 1)
Quarter: 2013Q1

REPORT INFORMATION
  Report Type: Spontaneous
  Country: US (occurrence: US)
  Receive Date: 20130307
  Receipt Date: 20130307
  Transmission Date: 20140127
  Serious: No
  Sender: FDA-Public Use
  Company Number: US-PFIZER INC-2013075648

PATIENT
  Age: 65 Year
  Sex: Female

DRUGS (4)
  1. ERYTHROMYCIN [Suspect]
     Dosage: UNK
  2. ADVIL [Suspect]
     Dosage: UNK
  3. MOTRIN [Suspect]
     Dosage: UNK
  4. ASPIRIN [Suspect]

REACTIONS (3)
  - Irritable bowel syndrome [Unknown]
  - Gastrooesophageal reflux disease [Unknown]
  - Dyspepsia [Unknown]
